FAERS Safety Report 9989182 (Version 1)
Quarter: 2014Q1

REPORT INFORMATION
  Report Type: Spontaneous
  Country: JP (occurrence: JP)
  Receive Date: 20140310
  Receipt Date: 20140310
  Transmission Date: 20141002
  Serious: Yes (Hospitalization)
  Sender: FDA-Public Use
  Company Number: 2014SP001143

PATIENT
  Age: 59 Year
  Sex: Female

DRUGS (1)
  1. GEMCITABINE [Suspect]
     Indication: METASTASES TO BONE
     Dates: start: 201103

REACTIONS (7)
  - Tumour lysis syndrome [Unknown]
  - Depressed level of consciousness [Unknown]
  - Anaemia [Unknown]
  - Hypercalcaemia [Unknown]
  - Hyperuricaemia [Unknown]
  - Liver disorder [Unknown]
  - Renal disorder [Unknown]
